FAERS Safety Report 6223794-1 (Version None)
Quarter: 2009Q2

REPORT INFORMATION
  Report Type: 
  Country: None (occurrence: None)
  Receive Date: 20090611
  Receipt Date: 20090528
  Transmission Date: 20091009
  Serious: No
  Sender: FDA-Public Use
  Company Number: US-ABBOTT-09P-163-0559266-00

PATIENT
  Sex: Male
  Weight: 88.53 kg

DRUGS (4)
  1. HUMIRA [Suspect]
     Indication: PSORIASIS
     Route: 058
     Dates: start: 20070201
  2. HUMIRA [Suspect]
     Indication: PSORIATIC ARTHROPATHY
  3. HUMIRA [Suspect]
     Indication: RHEUMATOID ARTHRITIS
  4. UNKNOWN MEDICATION [Concomitant]
     Indication: DYSPEPSIA

REACTIONS (2)
  - DRUG DOSE OMISSION [None]
  - INCORRECT DOSE ADMINISTERED [None]
